FAERS Safety Report 17206018 (Version 3)
Quarter: 2020Q4

REPORT INFORMATION
  Report Type: Spontaneous
  Country: CA (occurrence: CA)
  Receive Date: 20191227
  Receipt Date: 20201030
  Transmission Date: 20210113
  Serious: Yes (Other)
  Sender: FDA-Public Use
  Company Number: CA-ORION CORPORATION ORION PHARMA-TREX2019-6073

PATIENT
  Sex: Female

DRUGS (5)
  1. METHOTREXATE (TRADE NAME UNKNOWN) [Suspect]
     Active Substance: METHOTREXATE
     Route: 065
  2. XELJANZ [Concomitant]
     Active Substance: TOFACITINIB CITRATE
     Indication: RHEUMATOID ARTHRITIS
     Route: 048
     Dates: start: 20200221
  3. PLAQUENIL [Suspect]
     Active Substance: HYDROXYCHLOROQUINE SULFATE
     Indication: PRODUCT USED FOR UNKNOWN INDICATION
     Route: 065
     Dates: end: 201802
  4. METHOTREXATE (TRADE NAME UNKNOWN) [Suspect]
     Active Substance: METHOTREXATE
     Indication: PRODUCT USED FOR UNKNOWN INDICATION
     Route: 065
     Dates: start: 2010, end: 201802
  5. CORTISONE [Concomitant]
     Active Substance: CORTISONE
     Dosage: AS NEEDED
     Route: 030

REACTIONS (9)
  - Leukaemia [Unknown]
  - Anaemia [Unknown]
  - Neutrophil count increased [Unknown]
  - Drug ineffective [Unknown]
  - Lymphoma [Unknown]
  - Flank pain [Unknown]
  - Diabetes mellitus [Unknown]
  - White blood cell count increased [Unknown]
  - Splenomegaly [Unknown]
